FAERS Safety Report 9618481 (Version 1)
Quarter: 2013Q4

REPORT INFORMATION
  Report Type: Spontaneous
  Country: US (occurrence: US)
  Receive Date: 20131014
  Receipt Date: 20131014
  Transmission Date: 20140711
  Serious: No
  Sender: FDA-Public Use
  Company Number: US-PFIZER INC-2013289656

PATIENT
  Sex: Male
  Weight: 3.1 kg

DRUGS (16)
  1. PRISTIQ [Suspect]
     Dosage: UNK
  2. KEPPRA [Suspect]
     Indication: EPILEPSY
     Dosage: 1500 MG, 2X/DAY
     Route: 064
  3. ALBUTEROL SULFATE [Suspect]
     Indication: ASTHMA
     Dosage: UNK, AS NEEDED
     Route: 064
  4. BIAXIN [Suspect]
     Indication: BRONCHITIS
     Dosage: UNK
     Dates: start: 20121201, end: 20121205
  5. TRAZODONE [Suspect]
     Indication: INSOMNIA
     Dosage: 100 MG, 1X/DAY
     Route: 064
  6. SINGULAIR [Suspect]
     Indication: ASTHMA
     Dosage: 10 MG, 1X/DAY
     Route: 064
  7. FLONASE [Suspect]
     Indication: SINUSITIS
     Dosage: 1 DF, 2X/DAY (1 SPRAY / TWICE PER DAY)
     Route: 064
     Dates: start: 2003, end: 20121215
  8. FLONASE [Suspect]
     Indication: SINUS CONGESTION
  9. FLONASE [Suspect]
     Indication: SINUSITIS
  10. FLOVENT [Suspect]
     Indication: ASTHMA
     Dosage: 2 DF, 2X/DAY (2 PUFF(S)/ TWICE PER DAY)
     Route: 064
  11. SUDAFED [Suspect]
     Indication: SINUS CONGESTION
     Dosage: UNK, AS NEEDED
  12. TEMAZEPAM [Concomitant]
     Dosage: UNK
  13. FIORICET [Concomitant]
     Dosage: UNK
  14. VITAMIN D [Concomitant]
     Dosage: UNK
  15. PREDNISONE [Concomitant]
     Dosage: UNK
  16. AMOXICILLIN [Concomitant]
     Dosage: UNK

REACTIONS (2)
  - Maternal exposure during pregnancy [Unknown]
  - Pyrexia [Recovered/Resolved]
